FAERS Safety Report 23630121 (Version 1)
Quarter: 2024Q1

REPORT INFORMATION
  Report Type: Spontaneous
  Country: US (occurrence: US)
  Receive Date: 20240314
  Receipt Date: 20240314
  Transmission Date: 20240410
  Serious: No
  Sender: FDA-Public Use
  Company Number: US-BIOGEN-2024BI01245752

PATIENT
  Sex: Female

DRUGS (1)
  1. VUMERITY [Suspect]
     Active Substance: DIROXIMEL FUMARATE
     Indication: Multiple sclerosis
     Dosage: TAKE 2 CAPSULES 2 TIMES A DAY, STARTED ABOUT 2 YEARS AGO
     Route: 050
     Dates: start: 20201222, end: 20231130

REACTIONS (4)
  - Ear infection [Recovered/Resolved]
  - Night sweats [Recovered/Resolved]
  - Flushing [Unknown]
  - Herpes zoster [Recovered/Resolved]

NARRATIVE: CASE EVENT DATE: 20230101
